FAERS Safety Report 9839560 (Version 2)
Quarter: 2014Q1

REPORT INFORMATION
  Report Type: Spontaneous
  Country: AU (occurrence: AU)
  Receive Date: 20140124
  Receipt Date: 20140206
  Transmission Date: 20141002
  Serious: Yes (Death)
  Sender: FDA-Public Use
  Company Number: AU-BEH-2014040325

PATIENT
  Age: 74 Year
  Sex: Female

DRUGS (2)
  1. IMMUNOGLOBULIN I.V [Suspect]
     Indication: STIFF PERSON SYNDROME
  2. DIAZEPAM [Concomitant]

REACTIONS (1)
  - Drug ineffective for unapproved indication [Fatal]
